FAERS Safety Report 11418725 (Version 2)
Quarter: 2015Q3

REPORT INFORMATION
  Report Type: Spontaneous
  Country: IN (occurrence: IN)
  Receive Date: 20150826
  Receipt Date: 20150907
  Transmission Date: 20151125
  Serious: Yes (Death, Hospitalization)
  Sender: FDA-Public Use
  Company Number: IN-PFIZER INC-2015256394

PATIENT
  Age: 53 Year
  Sex: Male

DRUGS (1)
  1. SUTENT [Suspect]
     Active Substance: SUNITINIB MALATE
     Indication: METASTATIC RENAL CELL CARCINOMA
     Dosage: 50 MG, CYCLIC (1X/DAY, 2 WEEKS ON AND ONE WEEK OFF)
     Route: 048
     Dates: start: 20150722, end: 201508

REACTIONS (10)
  - Diarrhoea [Recovered/Resolved]
  - Pyrexia [Recovered/Resolved]
  - Metastatic renal cell carcinoma [Fatal]
  - Disease progression [Fatal]
  - Mouth ulceration [Not Recovered/Not Resolved]
  - Dyspnoea [Recovering/Resolving]
  - Pleural effusion [Recovered/Resolved]
  - Fatigue [Not Recovered/Not Resolved]
  - Cough [Recovered/Resolved]
  - Rash [Unknown]

NARRATIVE: CASE EVENT DATE: 2015
